FAERS Safety Report 12947496 (Version 5)
Quarter: 2017Q2

REPORT INFORMATION
  Report Type: Spontaneous
  Country: US (occurrence: US)
  Receive Date: 20161116
  Receipt Date: 20170406
  Transmission Date: 20170830
  Serious: No
  Sender: FDA-Public Use
  Company Number: US-PFIZER INC-2016528606

PATIENT
  Age: 84 Year
  Sex: Male
  Weight: 136 kg

DRUGS (13)
  1. LYRICA [Suspect]
     Active Substance: PREGABALIN
     Indication: BURNING FEET SYNDROME
     Dosage: 200 MG, 2X/DAY
     Route: 048
     Dates: start: 201611, end: 201612
  2. TERAZOSIN [Concomitant]
     Active Substance: TERAZOSIN\TERAZOSIN HYDROCHLORIDE
     Dosage: 5 MG, 1X/DAY
     Route: 048
  3. DULOXETINE. [Concomitant]
     Active Substance: DULOXETINE
     Indication: BURNING SENSATION
     Dosage: 30 MG, 2X/DAY
     Route: 048
  4. NITROGLYCERIN. [Concomitant]
     Active Substance: NITROGLYCERIN
     Indication: CHEST PAIN
     Dosage: 4 MG, AS NEEDED
     Route: 060
  5. GABAPENTIN. [Suspect]
     Active Substance: GABAPENTIN
     Indication: BURNING FEET SYNDROME
     Dosage: 600 MG, 1X/DAY
     Route: 048
  6. GABAPENTIN. [Suspect]
     Active Substance: GABAPENTIN
     Dosage: 1200 MG, 3X/DAY
     Route: 048
  7. FINASTERIDE. [Concomitant]
     Active Substance: FINASTERIDE
     Dosage: 5 MG, 1X/DAY
     Route: 048
  8. CLOPIDOGREL BISULFATE. [Concomitant]
     Active Substance: CLOPIDOGREL BISULFATE
     Dosage: 5 MG, 1X/DAY
     Route: 048
  9. LEVOTHYROXINE. [Concomitant]
     Active Substance: LEVOTHYROXINE
     Dosage: 25 UG, 1X/DAY
     Route: 048
  10. ATORVASTATIN CALCIUM. [Concomitant]
     Active Substance: ATORVASTATIN CALCIUM
     Dosage: 40 MG, 1X/DAY
     Route: 048
  11. ALLOPURINOL. [Concomitant]
     Active Substance: ALLOPURINOL
     Indication: GOUT
     Dosage: 80 MG, 1X/DAY
     Route: 048
  12. METHOTREXATE. [Concomitant]
     Active Substance: METHOTREXATE
     Indication: ARTHRITIS
     Dosage: 10 MG, WEEKLY (FOUR PILLS BY MOUTH ONCE A WEEK)
     Route: 048
  13. AMLODIPINE BESILATE [Concomitant]
     Active Substance: AMLODIPINE BESYLATE
     Indication: CARDIAC DISORDER
     Dosage: 5 MG, 1X/DAY
     Route: 048

REACTIONS (6)
  - Drug effect incomplete [Unknown]
  - Overweight [Unknown]
  - Pain in extremity [Unknown]
  - Dyspnoea [Recovering/Resolving]
  - Middle insomnia [Unknown]
  - Drug intolerance [Unknown]

NARRATIVE: CASE EVENT DATE: 201612
